FAERS Safety Report 4616964-7 (Version None)
Quarter: 2005Q2

REPORT INFORMATION
  Report Type: 
  Country: None (occurrence: None)
  Receive Date: 20050311
  Receipt Date: 20041102
  Transmission Date: 20051028
  Serious: No
  Sender: FDA-Public Use
  Company Number: 2004-BP-09942BP

PATIENT
  Age: 73 Year
  Sex: Male

DRUGS (13)
  1. SPIRIVA [Suspect]
     Indication: CHRONIC OBSTRUCTIVE PULMONARY DISEASE
     Dosage: 18 MCG (18 MCG), IH
     Route: 055
     Dates: start: 20040622
  2. SPIRIVA [Suspect]
     Indication: DYSPNOEA
     Dosage: 18 MCG (18 MCG), IH
     Route: 055
     Dates: start: 20040622
  3. SPIRIVA [Suspect]
     Indication: EMPHYSEMA
     Dosage: 18 MCG (18 MCG), IH
     Route: 055
     Dates: start: 20040622
  4. ALBUTEROL [Concomitant]
  5. COUMADIN [Concomitant]
  6. DIGOXIN [Concomitant]
  7. VERAPAMIL [Concomitant]
  8. ACETYLSALICYLIC ACID SRT [Concomitant]
  9. LIPITOR [Concomitant]
  10. RISPERDAL [Concomitant]
  11. FOLIC ACID [Concomitant]
  12. SEPTRA [Concomitant]
  13. ARICEPT [Concomitant]

REACTIONS (2)
  - DYSPNOEA [None]
  - FATIGUE [None]
